FAERS Safety Report 6663443-1 (Version None)
Quarter: 2010Q1

REPORT INFORMATION
  Report Type: 
  Country: None (occurrence: None)
  Receive Date: 20100330
  Receipt Date: 20100330
  Transmission Date: 20100710
  Serious: Yes (Hospitalization)
  Sender: FDA-Public Use
  Company Number: None

PATIENT
  Age: 44 Year
  Sex: Male
  Weight: 80.7403 kg

DRUGS (1)
  1. NITROSTAT [Suspect]
     Indication: CHEST DISCOMFORT
     Dosage: 2 TABS PRN PO
     Route: 048
     Dates: start: 20100225, end: 20100225

REACTIONS (1)
  - DRUG INEFFECTIVE [None]
